FAERS Safety Report 15058596 (Version 2)
Quarter: 2018Q3

REPORT INFORMATION
  Report Type: Spontaneous
  Country: JP (occurrence: JP)
  Receive Date: 20180625
  Receipt Date: 20180706
  Transmission Date: 20181010
  Serious: Yes (Hospitalization)
  Sender: FDA-Public Use
  Company Number: JP-ORION CORPORATION ORION PHARMA-ENTC2018-0193

PATIENT
  Age: 77 Year
  Sex: Female

DRUGS (16)
  1. TOVIAZ [Concomitant]
     Active Substance: FESOTERODINE FUMARATE
     Route: 065
  2. RIVOTRIL [Concomitant]
     Active Substance: CLONAZEPAM
     Route: 065
  3. SENNOSIDE [Concomitant]
     Active Substance: SENNOSIDES
     Route: 065
  4. FAMOTIDINE. [Concomitant]
     Active Substance: FAMOTIDINE
     Route: 065
  5. METHYCOBAL [Concomitant]
     Active Substance: METHYLCOBALAMIN
     Route: 065
  6. MEMARY [Concomitant]
     Active Substance: MEMANTINE HYDROCHLORIDE
     Route: 065
  7. FP?OD [Concomitant]
     Active Substance: SELEGILINE HYDROCHLORIDE
     Route: 065
  8. TELEMINSOFT [Concomitant]
     Active Substance: BISACODYL
     Route: 065
  9. MIRAPEX [Concomitant]
     Active Substance: PRAMIPEXOLE DIHYDROCHLORIDE
     Route: 065
  10. STALEVO [Suspect]
     Active Substance: CARBIDOPA\ENTACAPONE\LEVODOPA
     Indication: PARKINSON^S DISEASE
     Dosage: STRENGTH: 100/10/100 MG, 4 TABLETS A DAY, AFTER EVERY MEAL AND AT 15:00
     Route: 048
     Dates: end: 20180613
  11. AMITIZA [Concomitant]
     Active Substance: LUBIPROSTONE
     Route: 065
  12. STALEVO [Suspect]
     Active Substance: CARBIDOPA\ENTACAPONE\LEVODOPA
     Dosage: STRENGTH: 100/10/100 MG, 4 TABLETS A DAY, AFTER EVERY MEAL AND AT 15:00
     Route: 048
     Dates: start: 20180617
  13. MAGNESIUM OXIDE. [Concomitant]
     Active Substance: MAGNESIUM OXIDE
     Route: 065
  14. TRERIEF [Concomitant]
     Active Substance: ZONISAMIDE
     Route: 065
  15. LAXOBERON [Concomitant]
     Active Substance: SODIUM PICOSULFATE
     Route: 065
  16. DOPASTON [Concomitant]
     Active Substance: LEVODOPA
     Route: 042
     Dates: start: 20180615, end: 20180619

REACTIONS (2)
  - Dysphagia [Unknown]
  - Ileus paralytic [Recovering/Resolving]

NARRATIVE: CASE EVENT DATE: 201806
